FAERS Safety Report 7897212-1 (Version None)
Quarter: 2011Q4

REPORT INFORMATION
  Report Type: 
  Country: None (occurrence: None)
  Receive Date: 20111028
  Receipt Date: 20111028
  Transmission Date: 20120403
  Serious: Yes (Other)
  Sender: FDA-Public Use
  Company Number: ALL1-2011-01622

PATIENT
  Age: 10 Year
  Sex: Male

DRUGS (4)
  1. UNSPECIFIED ANTI-SEIZURE [Concomitant]
  2. INTUNIV [Suspect]
     Indication: ATTENTION DEFICIT/HYPERACTIVITY DISORDER
     Dosage: 2 MG 1X/DAY:QD ORAL, 1MG 1X/DAY:QD ORAL
     Route: 048
     Dates: start: 20110101, end: 20110201
  3. INTUNIV [Suspect]
     Indication: ATTENTION DEFICIT/HYPERACTIVITY DISORDER
     Dosage: 2 MG 1X/DAY:QD ORAL, 1MG 1X/DAY:QD ORAL
     Route: 048
     Dates: start: 20110201, end: 20110501
  4. UNSPECIFIED ANTI-SEIZURE [Concomitant]

REACTIONS (1)
  - CONVULSION [None]
